FAERS Safety Report 14118895 (Version 1)
Quarter: 2017Q4

REPORT INFORMATION
  Report Type: Report from Study
  Country: US (occurrence: US)
  Receive Date: 20171024
  Receipt Date: 20171024
  Transmission Date: 20180321
  Serious: Yes (Death, Other)
  Sender: FDA-Public Use
  Company Number: US-GILEAD-2017-0300207

PATIENT
  Age: 85 Year
  Sex: Female

DRUGS (10)
  1. ROPINIROLE. [Concomitant]
     Active Substance: ROPINIROLE
  2. FUROSEMIDE. [Concomitant]
     Active Substance: FUROSEMIDE
  3. TRAZODONE [Concomitant]
     Active Substance: TRAZODONE HYDROCHLORIDE
  4. AMBRISENTAN [Suspect]
     Active Substance: AMBRISENTAN
     Indication: PULMONARY ARTERIAL HYPERTENSION
     Dosage: 10 MG, QD
     Route: 065
  5. GLIPIZIDE. [Concomitant]
     Active Substance: GLIPIZIDE
  6. OCUVITE [Concomitant]
     Active Substance: VITAMINS
  7. CARVEDILOL. [Concomitant]
     Active Substance: CARVEDILOL
  8. SIMVASTATIN. [Concomitant]
     Active Substance: SIMVASTATIN
  9. CLINDAMYCIN. [Concomitant]
     Active Substance: CLINDAMYCIN
  10. METFORMIN [Concomitant]
     Active Substance: METFORMIN HYDROCHLORIDE

REACTIONS (1)
  - Death [Fatal]
